FAERS Safety Report 5953325-2 (Version None)
Quarter: 2008Q4

REPORT INFORMATION
  Report Type: 
  Country: None (occurrence: None)
  Receive Date: 20081114
  Receipt Date: 20081022
  Transmission Date: 20090506
  Serious: No
  Sender: FDA-Public Use
  Company Number: US-JNJFOC-20081005694

PATIENT
  Sex: Male
  Weight: 83.92 kg

DRUGS (5)
  1. INVEGA [Suspect]
  2. INVEGA [Suspect]
     Indication: SCHIZOPHRENIA
  3. UNKNOWN MEDICATIONS [Concomitant]
     Indication: ATTENTION DEFICIT/HYPERACTIVITY DISORDER
  4. UNKNOWN MEDICATIONS [Concomitant]
     Indication: DEPRESSION
  5. UNKNOWN MEDICATIONS [Concomitant]
     Indication: SCHIZOPHRENIA

REACTIONS (1)
  - DYSKINESIA [None]
